FAERS Safety Report 14539992 (Version 1)
Quarter: 2018Q1

REPORT INFORMATION
  Report Type: Spontaneous
  Country: NL (occurrence: NL)
  Receive Date: 20180216
  Receipt Date: 20180216
  Transmission Date: 20180509
  Serious: Yes (Other)
  Sender: FDA-Public Use
  Company Number: NL-TEVA-2018-NL-858004

PATIENT
  Age: 30 Year
  Sex: Female

DRUGS (8)
  1. FOSTER [Concomitant]
     Active Substance: BECLOMETHASONE\FORMOTEROL
  2. PROTOPIC SALVE [Concomitant]
  3. OXAZEPAM 10MG [Concomitant]
     Active Substance: OXAZEPAM
     Dosage: ZN 10MG
  4. CHOLECALCIFEROL [Concomitant]
     Active Substance: CHOLECALCIFEROL
  5. SPIRIVA [Concomitant]
     Active Substance: TIOTROPIUM BROMIDE MONOHYDRATE
  6. AMOXICILLINE 500MG [Concomitant]
     Dosage: 1DD1
     Dates: start: 20171114
  7. CITALOPRAM [Concomitant]
     Active Substance: CITALOPRAM HYDROBROMIDE
     Dosage: ONCE DAILY 15MG
     Dates: start: 2017
  8. PREDNISOLON CAPSULE, 30 MG (MILLIGRAM) [Suspect]
     Active Substance: PREDNISOLONE
     Indication: ASTHMA
     Dosage: ONCE DAILY 1 TABLET
     Dates: start: 20171114, end: 20171117

REACTIONS (6)
  - Hyperhidrosis [Recovered/Resolved]
  - Delirium [Recovered/Resolved]
  - Poor quality sleep [Recovered/Resolved]
  - Pyrexia [Recovered/Resolved]
  - Palpitations [Recovered/Resolved]
  - Sleep talking [Recovered/Resolved]

NARRATIVE: CASE EVENT DATE: 20171117
